FAERS Safety Report 12061085 (Version 1)
Quarter: 2016Q1

REPORT INFORMATION
  Report Type: Report from Study
  Country: BR (occurrence: BR)
  Receive Date: 20160210
  Receipt Date: 20160210
  Transmission Date: 20160526
  Serious: Yes (Hospitalization, Other)
  Sender: FDA-Public Use
  Company Number: BR-ABBVIE-16K-020-1554327-00

PATIENT
  Age: 59 Year
  Sex: Female
  Weight: 84 kg

DRUGS (3)
  1. HUMIRA [Suspect]
     Active Substance: ADALIMUMAB
     Indication: ANKYLOSING SPONDYLITIS
     Route: 058
     Dates: start: 20110824
  2. METHOTREXATE [Concomitant]
     Active Substance: METHOTREXATE
     Indication: SPONDYLITIS
     Route: 048
     Dates: start: 2011
  3. FOLIC ACID. [Concomitant]
     Active Substance: FOLIC ACID
     Indication: SPONDYLITIS
     Route: 048
     Dates: start: 2011

REACTIONS (19)
  - Stomatitis [Recovering/Resolving]
  - Swelling face [Unknown]
  - Pruritus [Recovering/Resolving]
  - Neck pain [Recovering/Resolving]
  - Finger deformity [Not Recovered/Not Resolved]
  - Injection site papule [Recovered/Resolved]
  - Injection site erythema [Recovered/Resolved]
  - Bile duct stenosis [Recovered/Resolved]
  - Intestinal obstruction [Recovered/Resolved]
  - Wound [Recovering/Resolving]
  - Feeling hot [Recovering/Resolving]
  - Inflammation [Recovered/Resolved]
  - Local swelling [Unknown]
  - Inflammation [Recovering/Resolving]
  - Injection site pain [Recovered/Resolved]
  - Mouth swelling [Unknown]
  - Oral pruritus [Recovering/Resolving]
  - Pain [Unknown]
  - Hypersensitivity [Unknown]

NARRATIVE: CASE EVENT DATE: 201501
